FAERS Safety Report 24694929 (Version 1)
Quarter: 2024Q4

REPORT INFORMATION
  Report Type: Spontaneous
  Country: US (occurrence: None)
  Receive Date: 20241203
  Receipt Date: 20241203
  Transmission Date: 20250114
  Serious: No
  Sender: Public
  Company Number: None

PATIENT
  Age: 56 Year
  Sex: Male
  Weight: 67.5 kg

DRUGS (9)
  1. BIKTARVY [Suspect]
     Active Substance: BICTEGRAVIR SODIUM\EMTRICITABINE\TENOFOVIR ALAFENAMIDE FUMARATE
     Indication: HIV infection
     Dosage: FREQUENCY : DAILY;?
     Route: 048
  2. Sildenafil 100mg tablets [Concomitant]
     Dates: start: 20241126
  3. PANTOPRAZOLE [Concomitant]
     Active Substance: PANTOPRAZOLE
     Dates: start: 20240531
  4. Oxybutynin 5mg tablets [Concomitant]
     Dates: start: 20240531
  5. Naltrexone 50mg tablets [Concomitant]
     Dates: start: 20241010
  6. TAMSULOSIN [Concomitant]
     Active Substance: TAMSULOSIN
     Dates: start: 20240802
  7. Diclofenac 1 % gel [Concomitant]
     Dates: start: 20241016
  8. Acetaminophen 500mg tablets [Concomitant]
     Dates: start: 20240808
  9. Nicotene 7mg TD patch [Concomitant]
     Dates: start: 20240716

REACTIONS (1)
  - Renal failure [None]
